FAERS Safety Report 9826080 (Version 1)
Quarter: 2013Q4

REPORT INFORMATION
  Report Type: Spontaneous
  Country: US (occurrence: None)
  Receive Date: 20131223
  Receipt Date: 20131223
  Transmission Date: 20140711
  Serious: Yes (Other)
  Sender: FDA-Public Use
  Company Number: 218358LEO

PATIENT
  Age: 57 Year
  Sex: Male

DRUGS (3)
  1. PICATO [Suspect]
     Indication: PRECANCEROUS SKIN LESION
     Route: 061
     Dates: start: 20120701, end: 20120703
  2. PRAVACOL(PRAVASTATIN SODIUM) [Concomitant]
  3. DIOVAN(VALSARTAN) [Concomitant]

REACTIONS (3)
  - Skin exfoliation [None]
  - Skin irritation [None]
  - Condition aggravated [None]
